FAERS Safety Report 15391409 (Version 1)
Quarter: 2018Q3

REPORT INFORMATION
  Report Type: Spontaneous
  Country: US (occurrence: US)
  Receive Date: 20180910
  Receipt Date: 20180910
  Transmission Date: 20181010
  Serious: Yes (Hospitalization)
  Sender: FDA-Public Use
  Company Number: None

PATIENT
  Sex: Male

DRUGS (15)
  1. SPRYCEL [Suspect]
     Active Substance: DASATINIB
     Indication: CHRONIC MYELOID LEUKAEMIA
     Route: 048
     Dates: start: 20150912
  2. METOPROLOL TARTRATE. [Concomitant]
     Active Substance: METOPROLOL TARTRATE
  3. FENOFIBRIC [Concomitant]
     Active Substance: FENOFIBRIC ACID
  4. ATORVASTATIN [Concomitant]
     Active Substance: ATORVASTATIN
  5. METHYLPHENID [Concomitant]
     Active Substance: METHYLPHENIDATE
  6. DULOXETINE. [Concomitant]
     Active Substance: DULOXETINE
  7. MYRBETRIQ [Concomitant]
     Active Substance: MIRABEGRON
  8. QUETIAPINE. [Concomitant]
     Active Substance: QUETIAPINE
  9. VITAMIN D [Concomitant]
     Active Substance: CHOLECALCIFEROL
  10. ZOHYDRP [Concomitant]
  11. XANAX [Concomitant]
     Active Substance: ALPRAZOLAM
  12. ALLEGRA [Concomitant]
     Active Substance: FEXOFENADINE HYDROCHLORIDE
  13. ALPRAZOLAM. [Concomitant]
     Active Substance: ALPRAZOLAM
  14. METRO/HCTZ [Concomitant]
  15. HYDRO/APAP [Concomitant]
     Active Substance: ACETAMINOPHEN\HYDROCODONE

REACTIONS (1)
  - Surgery [None]
